FAERS Safety Report 10670587 (Version 4)
Quarter: 2015Q2

REPORT INFORMATION
  Report Type: Report from Study
  Country: BR (occurrence: BR)
  Receive Date: 20141223
  Receipt Date: 20150415
  Transmission Date: 20150821
  Serious: Yes (Death, Hospitalization, Other)
  Sender: FDA-Public Use
  Company Number: PHHO2014BR016857

PATIENT
  Age: 56 Year
  Sex: Female
  Weight: 60.3 kg

DRUGS (5)
  1. MYCOPHENOLIC ACID. [Suspect]
     Active Substance: MYCOPHENOLIC ACID
     Indication: RENAL TRANSPLANT
     Dosage: 720 MG, BID
     Route: 048
     Dates: start: 20050721, end: 20140724
  2. MYCOPHENOLIC ACID. [Suspect]
     Active Substance: MYCOPHENOLIC ACID
     Dosage: 360 MG, BID
     Route: 048
     Dates: start: 20140726
  3. PREDNISONE. [Suspect]
     Active Substance: PREDNISONE
     Indication: RENAL TRANSPLANT
     Dosage: 5 MG, QD (ONCE/DAY)
     Route: 048
     Dates: start: 20050721
  4. TACROLIMUS. [Suspect]
     Active Substance: TACROLIMUS
     Indication: RENAL TRANSPLANT
     Route: 065
  5. CICLOSPORIN [Suspect]
     Active Substance: CYCLOSPORINE
     Indication: RENAL TRANSPLANT
     Dosage: 25 MG, BID
     Route: 048
     Dates: start: 20050721

REACTIONS (4)
  - Multi-organ failure [Fatal]
  - Septic shock [Fatal]
  - Gastroenteritis [Fatal]
  - Urinary tract infection [Recovered/Resolved]

NARRATIVE: CASE EVENT DATE: 20140722
